FAERS Safety Report 7387486-8 (Version None)
Quarter: 2011Q1

REPORT INFORMATION
  Report Type: 
  Country: None (occurrence: None)
  Receive Date: 20110331
  Receipt Date: 20110330
  Transmission Date: 20110831
  Serious: Yes (Other)
  Sender: FDA-Public Use
  Company Number: JP-PFIZER INC-2011071118

PATIENT
  Age: 84 Year
  Sex: Male

DRUGS (2)
  1. HALCION [Suspect]
     Dosage: 0.25 MG, 1X/DAY
     Route: 048
  2. SOLANAX [Suspect]
     Dosage: 0.4 MG, 1X/DAY
     Route: 048

REACTIONS (1)
  - DELIRIUM [None]
